FAERS Safety Report 13869174 (Version 5)
Quarter: 2018Q1

REPORT INFORMATION
  Report Type: Report from Study
  Country: US (occurrence: US)
  Receive Date: 20170815
  Receipt Date: 20180112
  Transmission Date: 20180508
  Serious: Yes (Hospitalization, Other)
  Sender: FDA-Public Use
  Company Number: US-GILEAD-2017-0287663

PATIENT
  Age: 62 Year
  Sex: Female

DRUGS (2)
  1. ADCIRCA [Concomitant]
     Active Substance: TADALAFIL
     Dosage: UNK
  2. AMBRISENTAN [Suspect]
     Active Substance: AMBRISENTAN
     Indication: PRODUCT USED FOR UNKNOWN INDICATION
     Dosage: 5 MG, QD
     Route: 065
     Dates: start: 20160129

REACTIONS (11)
  - Decreased appetite [Not Recovered/Not Resolved]
  - Rectal haemorrhage [Unknown]
  - Haemorrhage [Unknown]
  - Transfusion [Unknown]
  - Unevaluable event [Unknown]
  - Immunoglobulin therapy [Unknown]
  - Infection [Unknown]
  - Feeling abnormal [Not Recovered/Not Resolved]
  - Sinusitis [Not Recovered/Not Resolved]
  - Malaise [Unknown]
  - Vomiting [Unknown]
